FAERS Safety Report 5168369-0 (Version None)
Quarter: 2006Q4

REPORT INFORMATION
  Report Type: 
  Country: None (occurrence: None)
  Receive Date: 20061208
  Receipt Date: 20061103
  Transmission Date: 20070319
  Serious: Yes (Death, Hospitalization)
  Sender: FDA-Public Use
  Company Number: AR-ABBOTT-06P-007-0348882-00

PATIENT
  Sex: Female
  Weight: 44 kg

DRUGS (16)
  1. RITONAVIR SOFT GELATIN CAPSULES [Suspect]
     Indication: HIV INFECTION
     Route: 048
     Dates: start: 20061002, end: 20061009
  2. CLARITHROMYCIN [Interacting]
     Indication: ANTIBIOTIC PROPHYLAXIS
     Route: 048
     Dates: start: 19960101
  3. TMC114 (DARUNAVIR) [Interacting]
     Indication: HIV INFECTION
     Route: 048
     Dates: start: 20061002, end: 20061009
  4. LAMIVUDINE [Concomitant]
     Indication: HIV INFECTION
     Route: 048
     Dates: start: 20020319
  5. FUZEON [Concomitant]
     Indication: HIV INFECTION
     Route: 058
     Dates: start: 20060502
  6. DIDANOSINE [Concomitant]
     Indication: HIV INFECTION
     Dates: start: 20061002
  7. CASPOFUNGIN [Concomitant]
     Indication: CANDIDIASIS
     Route: 042
     Dates: start: 20060601
  8. ETHAMBUTOL HYDROCHLORIDE [Concomitant]
     Indication: ANTIBIOTIC PROPHYLAXIS
     Route: 048
     Dates: start: 19960101
  9. VALACYCLOVIR [Concomitant]
     Indication: ANTIVIRAL PROPHYLAXIS
     Route: 048
     Dates: start: 20060601
  10. CEFTRIAXONE [Concomitant]
     Indication: PNEUMONIA
     Route: 042
     Dates: start: 20060920
  11. CIPROFLOXACIN [Concomitant]
     Indication: PNEUMONIA
     Route: 048
     Dates: start: 20060920
  12. OMEPRAZOLE [Concomitant]
     Indication: PROPHYLAXIS
     Route: 048
     Dates: start: 20060101
  13. FERRUM SULPHATE [Concomitant]
     Indication: NUTRITIONAL SUPPORT
     Route: 048
     Dates: start: 20060101
  14. LEUCOVORIN CALCIUM [Concomitant]
     Indication: NUTRITIONAL SUPPORT
     Route: 048
     Dates: start: 20060101
  15. FLUNITRAZEPAM [Concomitant]
     Indication: INSOMNIA
     Dates: start: 20060101
  16. CLONAZEPAM [Concomitant]
     Indication: INSOMNIA
     Route: 048
     Dates: start: 20060101

REACTIONS (17)
  - ANAEMIA [None]
  - ATYPICAL MYCOBACTERIAL LYMPHADENITIS [None]
  - CARDIO-RESPIRATORY ARREST [None]
  - CHEST PAIN [None]
  - COAGULOPATHY [None]
  - CONVULSION [None]
  - DRUG INTERACTION [None]
  - DRUG TOXICITY [None]
  - HAEMORRHAGE [None]
  - HEPATIC FAILURE [None]
  - LYMPHOMA [None]
  - PNEUMONIA [None]
  - PROTHROMBIN TIME PROLONGED [None]
  - RESPIRATORY FAILURE [None]
  - SEPSIS [None]
  - SUBDURAL HAEMATOMA [None]
  - THROMBOCYTOPENIA [None]
